FAERS Safety Report 5332018-9 (Version None)
Quarter: 2007Q2

REPORT INFORMATION
  Report Type: 
  Country: None (occurrence: None)
  Receive Date: 20070523
  Receipt Date: 20070516
  Transmission Date: 20071010
  Serious: Yes (Other)
  Sender: FDA-Public Use
  Company Number: PHHO2007JP08402

PATIENT

DRUGS (3)
  1. CLOZAPINE [Suspect]
     Indication: SCHIZOPHRENIA
     Dosage: UP TO 425MG/DAILY
     Route: 048
     Dates: start: 20061109
  2. CLOZAPINE [Suspect]
     Dosage: 300MG
     Route: 048
     Dates: start: 20070503
  3. CLOZAPINE [Suspect]
     Dosage: 275MG
     Route: 048
     Dates: start: 20070310, end: 20070514

REACTIONS (8)
  - BLOOD CREATININE INCREASED [None]
  - BLOOD UREA INCREASED [None]
  - C-REACTIVE PROTEIN INCREASED [None]
  - DEPRESSED LEVEL OF CONSCIOUSNESS [None]
  - INFLAMMATION [None]
  - NEPHRITIC SYNDROME [None]
  - SEDATION [None]
  - WHITE BLOOD CELL COUNT INCREASED [None]
